FAERS Safety Report 24977489 (Version 2)
Quarter: 2025Q1

REPORT INFORMATION
  Report Type: Spontaneous
  Country: GB (occurrence: GB)
  Receive Date: 20250217
  Receipt Date: 20250220
  Transmission Date: 20250409
  Serious: Yes (Other)
  Sender: MERCK SHARP & DOHME LLC
  Company Number: GB-009507513-2253785

PATIENT
  Age: 53 Year
  Sex: Male

DRUGS (2)
  1. KEYTRUDA [Suspect]
     Active Substance: PEMBROLIZUMAB
     Indication: Metastatic renal cell carcinoma
  2. LENVATINIB [Suspect]
     Active Substance: LENVATINIB
     Indication: Metastatic renal cell carcinoma

REACTIONS (7)
  - Cardiac failure [Recovered/Resolved]
  - Liver function test increased [Unknown]
  - COVID-19 pneumonia [Unknown]
  - Immune-mediated hepatic disorder [Unknown]
  - Hepatitis [Unknown]
  - Hypothyroidism [Unknown]
  - Diarrhoea [Unknown]

NARRATIVE: CASE EVENT DATE: 20230101
